FAERS Safety Report 8836997 (Version 1)
Quarter: 2012Q4

REPORT INFORMATION
  Report Type: Spontaneous
  Country: US (occurrence: None)
  Receive Date: 20121011
  Receipt Date: 20121011
  Transmission Date: 20130627
  Serious: Yes (Hospitalization)
  Sender: FDA-Public Use
  Company Number: None

PATIENT
  Age: 80 Year
  Sex: Female
  Weight: 61 kg

DRUGS (12)
  1. DABIGATRAN [Suspect]
     Route: 048
  2. ASCORBIC ACID [Concomitant]
  3. ASPIRIN [Concomitant]
  4. ATORVASTATIN [Concomitant]
  5. BENZONATATE [Concomitant]
  6. CALCIUM + VITAMIN D [Concomitant]
  7. CHOLECALCIFEROL [Concomitant]
  8. FERROUS SULFATE [Concomitant]
  9. GABAPENTIN [Concomitant]
  10. MAGNESIUM LACTATE [Concomitant]
  11. NADOLOL [Concomitant]
  12. NITROGLYCERIN SL [Concomitant]

REACTIONS (1)
  - Haemoptysis [None]
